FAERS Safety Report 20524418 (Version 1)
Quarter: 2022Q1

REPORT INFORMATION
  Report Type: Report from Study
  Country: ZA (occurrence: ZA)
  Receive Date: 20220228
  Receipt Date: 20220228
  Transmission Date: 20220423
  Serious: Yes (Hospitalization, Other)
  Sender: FDA-Public Use
  Company Number: ZA-SA-SAC20211215001498

PATIENT
  Age: 55 Year
  Sex: Male

DRUGS (6)
  1. INSULIN GLARGINE [Suspect]
     Active Substance: INSULIN GLARGINE
     Indication: Type 2 diabetes mellitus
     Dosage: 58 IU, HS
     Route: 058
     Dates: start: 20211029
  2. INSULIN GLARGINE [Suspect]
     Active Substance: INSULIN GLARGINE
     Dosage: 30 IU, QD
     Route: 058
     Dates: start: 20211029
  3. LYRICA [Concomitant]
     Active Substance: PREGABALIN
     Dosage: 50 MG (BEFORE SUPPER), 25 MG (BEFORE BREAKFAST)
     Dates: start: 20211029
  4. BISOPROLOL FUMARATE [Concomitant]
     Active Substance: BISOPROLOL FUMARATE
     Dosage: 10 MG, QD (BEFORE SUPPER)
     Dates: start: 20211029
  5. JALRAMET [Concomitant]
     Dosage: 1000 MG, Q12H (BEFORE SUPPER AND BEFORE BREAKFAST)
     Dates: start: 20211029
  6. APIDRA [Concomitant]
     Active Substance: INSULIN GLULISINE
     Dosage: BB-22 UNITS | BS-22 UNITS | BL-18 UNITS
     Dates: start: 20220111

REACTIONS (2)
  - Pneumonia [Recovering/Resolving]
  - Hyperglycaemia [Not Recovered/Not Resolved]

NARRATIVE: CASE EVENT DATE: 20220110
